FAERS Safety Report 6733426-1 (Version None)
Quarter: 2010Q2

REPORT INFORMATION
  Report Type: 
  Country: None (occurrence: None)
  Receive Date: 20100520
  Receipt Date: 20100505
  Transmission Date: 20101027
  Serious: Yes (Other)
  Sender: FDA-Public Use
  Company Number: GR-TYCO HEALTHCARE/MALLINCKRODT-T201001188

PATIENT

DRUGS (2)
  1. FLUOXETINE [Suspect]
     Indication: DEPRESSIVE SYMPTOM
     Dosage: 60 MG, QD
  2. ALPRAZOLAM [Concomitant]
     Indication: DEPRESSIVE SYMPTOM
     Dosage: 1.5 MG, QD

REACTIONS (2)
  - PARKINSONISM [None]
  - SUICIDAL IDEATION [None]
